FAERS Safety Report 22521631 (Version 1)
Quarter: 2023Q2

REPORT INFORMATION
  Report Type: Spontaneous
  Country: US (occurrence: US)
  Receive Date: 20230605
  Receipt Date: 20230605
  Transmission Date: 20230722
  Serious: Yes (Other)
  Sender: FDA-Public Use
  Company Number: US-BIOVITRUM-2023US01220

PATIENT
  Age: 83 Year
  Sex: Male

DRUGS (2)
  1. KINERET [Suspect]
     Active Substance: ANAKINRA
     Indication: Immune system disorder
     Dosage: EVERY OTHER DAY
     Route: 058
     Dates: start: 202002
  2. KINERET [Suspect]
     Active Substance: ANAKINRA
     Dosage: DAILY
     Route: 058
     Dates: start: 20200212

REACTIONS (11)
  - Intentional product misuse [Unknown]
  - White blood cell count decreased [Unknown]
  - Product dose omission issue [Unknown]
  - Full blood count decreased [Unknown]
  - Weight increased [Unknown]
  - Respiratory syncytial virus infection [Unknown]
  - Pneumonia [Recovering/Resolving]
  - Illness [Unknown]
  - Hypergammaglobulinaemia benign monoclonal [Unknown]
  - Pruritus [Unknown]
  - Cataract [Unknown]

NARRATIVE: CASE EVENT DATE: 20200212
